FAERS Safety Report 23174014 (Version 1)
Quarter: 2023Q4

REPORT INFORMATION
  Report Type: Spontaneous
  Country: US (occurrence: US)
  Receive Date: 20231112
  Receipt Date: 20231112
  Transmission Date: 20240110
  Serious: No
  Sender: FDA-Public Use
  Company Number: US-SA-SAC20231106001313

PATIENT
  Age: 53 Year
  Sex: Male
  Weight: 102.1 kg

DRUGS (1)
  1. DUPIXENT [Suspect]
     Active Substance: DUPILUMAB
     Indication: Dermatitis atopic
     Dosage: 300 MG, QOW
     Route: 058
     Dates: start: 20211122

REACTIONS (2)
  - Rash [Recovering/Resolving]
  - Hyperhidrosis [Recovering/Resolving]
